FAERS Safety Report 24613712 (Version 2)
Quarter: 2025Q1

REPORT INFORMATION
  Report Type: Spontaneous
  Country: JP (occurrence: JP)
  Receive Date: 20241113
  Receipt Date: 20250225
  Transmission Date: 20250408
  Serious: Yes (Other)
  Sender: GENMAB
  Company Number: JP-GENMAB-2024-03781

PATIENT
  Age: 62 Year
  Sex: Female

DRUGS (7)
  1. EPKINLY [Suspect]
     Active Substance: EPCORITAMAB-BYSP
     Indication: Diffuse large B-cell lymphoma
     Route: 058
     Dates: start: 2024, end: 2024
  2. EPKINLY [Suspect]
     Active Substance: EPCORITAMAB-BYSP
     Route: 058
     Dates: start: 2024, end: 2024
  3. EPKINLY [Suspect]
     Active Substance: EPCORITAMAB-BYSP
     Route: 058
     Dates: start: 2024
  4. FLUDARABINE [Concomitant]
     Active Substance: FLUDARABINE PHOSPHATE
     Indication: Premedication
     Dates: start: 2024, end: 2024
  5. MELPHALAN [Concomitant]
     Active Substance: MELPHALAN
     Indication: Premedication
     Dates: start: 2024, end: 2024
  6. TACROLIMUS [Concomitant]
     Active Substance: TACROLIMUS
     Dates: start: 2024, end: 2024
  7. METHOTREXATE [Concomitant]
     Active Substance: METHOTREXATE
     Dates: start: 2024, end: 2024

REACTIONS (8)
  - Pneumonia bacterial [Recovering/Resolving]
  - Acute graft versus host disease in intestine [Unknown]
  - Tumour pseudoprogression [Unknown]
  - Cytokine release syndrome [Recovered/Resolved]
  - Cytokine release syndrome [Recovered/Resolved]
  - Cytomegalovirus test positive [Unknown]
  - Human herpesvirus 6 infection [Unknown]
  - Erythema [Recovered/Resolved]

NARRATIVE: CASE EVENT DATE: 20240101
